FAERS Safety Report 25182028 (Version 1)
Quarter: 2025Q2

REPORT INFORMATION
  Report Type: Spontaneous
  Country: US (occurrence: US)
  Receive Date: 20250410
  Receipt Date: 20250410
  Transmission Date: 20250717
  Serious: No
  Sender: OPTINOSE INC
  Company Number: US-OptiNose US, Inc-2023OPT000165

PATIENT
  Sex: Male

DRUGS (3)
  1. XHANCE [Suspect]
     Active Substance: FLUTICASONE PROPIONATE
     Indication: Nasal polyps
     Dosage: 1 SPRAY IN EACH NOSTRIL TWICE A DAY
     Route: 045
     Dates: start: 20231114
  2. XHANCE [Suspect]
     Active Substance: FLUTICASONE PROPIONATE
     Indication: Sinusitis
  3. BUDESONIDE [Concomitant]
     Active Substance: BUDESONIDE
     Indication: Product used for unknown indication
     Route: 045

REACTIONS (11)
  - Secretion discharge [Unknown]
  - Productive cough [Unknown]
  - Feeling abnormal [Unknown]
  - Cough [Unknown]
  - Sinus headache [Unknown]
  - Anosmia [Not Recovered/Not Resolved]
  - Ageusia [Not Recovered/Not Resolved]
  - Asthenia [Unknown]
  - Off label use [Unknown]
  - Drug ineffective [Unknown]
  - Device issue [Unknown]
